FAERS Safety Report 9219853 (Version 1)
Quarter: 2013Q1

REPORT INFORMATION
  Report Type: Spontaneous
  Country: US (occurrence: None)
  Receive Date: 20120827
  Receipt Date: 20120827
  Transmission Date: 20140127
  Serious: Yes (Hospitalization)
  Sender: FDA-Public Use
  Company Number: KY201200143

PATIENT
  Age: 29 Year
  Sex: Female

DRUGS (1)
  1. MAKENA (HYDROXYPROGESTERONE CAPROATE 250 MG/ML) INJECTION, 250MG/ML [Suspect]
     Indication: PREMATURE DELIVERY
     Dates: start: 2012, end: 20120515

REACTIONS (1)
  - Premature labour [None]
